FAERS Safety Report 13784460 (Version 1)
Quarter: 2017Q3

REPORT INFORMATION
  Report Type: Spontaneous
  Country: US (occurrence: US)
  Receive Date: 20170724
  Receipt Date: 20170724
  Transmission Date: 20171127
  Serious: No
  Sender: FDA-Public Use
  Company Number: US-IMPAX LABORATORIES, INC-2017-IPXL-01073

PATIENT
  Sex: Female
  Weight: 83 kg

DRUGS (4)
  1. RYTARY [Suspect]
     Active Substance: CARBIDOPA\LEVODOPA
     Dosage: 48.75/195 MG, FOUR TIMES DAILY
     Route: 048
     Dates: start: 20170411
  2. AMANTADINE. [Concomitant]
     Active Substance: AMANTADINE HYDROCHLORIDE
     Indication: DRUG EFFECT INCREASED
     Dosage: 100 MG, 2 /DAY
     Route: 065
  3. CLONAZEPAM. [Concomitant]
     Active Substance: CLONAZEPAM
     Indication: PRODUCT USED FOR UNKNOWN INDICATION
     Dosage: UNK
     Route: 065
  4. RYTARY [Suspect]
     Active Substance: CARBIDOPA\LEVODOPA
     Indication: PARKINSON^S DISEASE
     Dosage: 48.75/195MG, THREE TIMES DAILY
     Route: 048
     Dates: start: 20170406, end: 201704

REACTIONS (3)
  - Drug ineffective [Unknown]
  - Tremor [Not Recovered/Not Resolved]
  - Parkinson^s disease [Unknown]
